FAERS Safety Report 9096070 (Version 4)
Quarter: 2013Q4

REPORT INFORMATION
  Report Type: Report from Study
  Country: CA (occurrence: CA)
  Receive Date: 20130207
  Receipt Date: 20131213
  Transmission Date: 20140711
  Serious: Yes (Other)
  Sender: FDA-Public Use
  Company Number: PHHY2011CA104558

PATIENT
  Age: 45 Year
  Sex: Female

DRUGS (11)
  1. EXJADE [Suspect]
     Indication: THALASSAEMIA
     Dosage: 1125 MG, QD
     Route: 048
     Dates: start: 20060706
  2. EXJADE [Suspect]
     Dosage: 1125 MG, QD
     Route: 048
     Dates: start: 2007
  3. EXJADE [Suspect]
     Dosage: 1125 MG, QD
     Route: 048
     Dates: end: 20121109
  4. EXJADE [Suspect]
     Dosage: 1250 MG, QD
     Route: 048
     Dates: start: 20121222
  5. EXJADE [Suspect]
     Dosage: 1500 MG, QD
     Dates: end: 20130201
  6. EXJADE [Suspect]
     Dosage: 1250 MG, QD
  7. SYNTHROID [Concomitant]
     Indication: THYROID DISORDER
     Dosage: 0.88 MG, UNK
  8. PENICILLIN NOS [Concomitant]
     Dosage: 500 MG, QD
  9. VITAMIN D [Concomitant]
     Dosage: 1000 IU, QD
  10. TUMS [Concomitant]
     Dosage: UNK UKN, UNK
  11. BENADRYL /OLD FORM/ [Concomitant]
     Dosage: UNK UKN, PRN

REACTIONS (12)
  - Haemorrhoids [Unknown]
  - Rectal haemorrhage [Unknown]
  - Urine analysis abnormal [Unknown]
  - Weight increased [Recovered/Resolved]
  - Nasopharyngitis [Unknown]
  - Incorrect dose administered [Unknown]
  - Malaise [Unknown]
  - Oedema peripheral [Recovered/Resolved]
  - Fluid retention [Unknown]
  - Face oedema [Recovered/Resolved]
  - Swelling [Unknown]
  - Diarrhoea [Unknown]
